FAERS Safety Report 12121091 (Version 2)
Quarter: 2019Q4

REPORT INFORMATION
  Report Type: Spontaneous
  Country: DE (occurrence: DE)
  Receive Date: 20160226
  Receipt Date: 20191217
  Transmission Date: 20200122
  Serious: Yes (Other)
  Sender: FDA-Public Use
  Company Number: DE-TEVA-637608GER

PATIENT
  Age: 34 Year
  Sex: Female

DRUGS (4)
  1. LAMOTRIGIN 25 MG [Concomitant]
     Indication: EPILEPSY
     Dosage: 25 MILLIGRAM DAILY;
     Route: 048
     Dates: start: 20150217, end: 20150224
  2. CARBAMAZEPIN [Suspect]
     Active Substance: CARBAMAZEPINE
     Indication: EPILEPSY
     Dosage: 1200 MILLIGRAM DAILY; INTAKE IN THE EVENING
     Route: 048
     Dates: start: 20141226, end: 20150602
  3. LEVETIRACETAM. [Suspect]
     Active Substance: LEVETIRACETAM
     Indication: EPILEPSY
     Dosage: 4000 MILLIGRAM DAILY;
     Route: 048
     Dates: start: 20150224, end: 20150602
  4. FOLSAEURE [Concomitant]
     Active Substance: FOLIC ACID
     Indication: PROPHYLAXIS OF NEURAL TUBE DEFECT
     Route: 048

REACTIONS (2)
  - Abortion induced [Unknown]
  - Maternal exposure during pregnancy [Unknown]
